FAERS Safety Report 7264259-8 (Version None)
Quarter: 2011Q1

REPORT INFORMATION
  Report Type: 
  Country: None (occurrence: None)
  Receive Date: 20110131
  Receipt Date: 20110114
  Transmission Date: 20110831
  Serious: No
  Sender: FDA-Public Use
  Company Number: US-BIOGENIDEC-2011BI002832

PATIENT
  Sex: Female

DRUGS (1)
  1. TYSABRI [Suspect]
     Indication: MULTIPLE SCLEROSIS
     Route: 042
     Dates: start: 20100315

REACTIONS (8)
  - OPEN WOUND [None]
  - MEMORY IMPAIRMENT [None]
  - FALL [None]
  - IMPAIRED HEALING [None]
  - FLUID RETENTION [None]
  - DERMATITIS CONTACT [None]
  - OEDEMA [None]
  - RASH [None]
